FAERS Safety Report 7983996-0 (Version None)
Quarter: 2011Q4

REPORT INFORMATION
  Report Type: 
  Country: None (occurrence: None)
  Receive Date: 20111216
  Receipt Date: 20111205
  Transmission Date: 20120403
  Serious: Yes (Hospitalization)
  Sender: FDA-Public Use
  Company Number: US-RANBAXY-2011US-51026

PATIENT

DRUGS (3)
  1. CLINDAMYCIN [Suspect]
     Indication: TOOTH EXTRACTION
     Dosage: 150 MG, SINGLE
     Route: 065
  2. CRESTOR [Concomitant]
     Indication: PRODUCT USED FOR UNKNOWN INDICATION
     Route: 065
  3. LISINOPRIL [Concomitant]
     Indication: PRODUCT USED FOR UNKNOWN INDICATION
     Dosage: UNK, UNK
     Route: 065

REACTIONS (3)
  - OROPHARYNGEAL PAIN [None]
  - RASH PRURITIC [None]
  - HYPERSENSITIVITY [None]
